FAERS Safety Report 14935072 (Version 1)
Quarter: 2018Q2

REPORT INFORMATION
  Report Type: Spontaneous
  Country: IT (occurrence: IT)
  Receive Date: 20180524
  Receipt Date: 20180524
  Transmission Date: 20180711
  Serious: Yes (Hospitalization, Other)
  Sender: FDA-Public Use
  Company Number: IT-PFIZER INC-2018210152

PATIENT
  Age: 63 Year
  Sex: Male
  Weight: 73 kg

DRUGS (1)
  1. AXITINIB [Suspect]
     Active Substance: AXITINIB
     Indication: RENAL CANCER METASTATIC
     Dosage: 10 MG DAILY
     Route: 048
     Dates: start: 20170601

REACTIONS (2)
  - Pulmonary embolism [Recovered/Resolved with Sequelae]
  - Pulmonary infarction [Recovered/Resolved with Sequelae]

NARRATIVE: CASE EVENT DATE: 20170828
